FAERS Safety Report 10503633 (Version 2)
Quarter: 2014Q4

REPORT INFORMATION
  Report Type: Spontaneous
  Country: US (occurrence: None)
  Receive Date: 20141003
  Receipt Date: 20141022
  Transmission Date: 20150528
  Serious: Yes (Other)
  Sender: FDA-Public Use
  Company Number: US-001290N

PATIENT
  Sex: Male

DRUGS (7)
  1. PROMETHAZINE [Concomitant]
     Active Substance: PROMETHAZINE\PROMETHAZINE HYDROCHLORIDE
  2. IZOFRAN [Concomitant]
  3. HYDROCODONE [Concomitant]
     Active Substance: HYDROCODONE
  4. GATTEX [Suspect]
     Active Substance: TEDUGLUTIDE\WATER
     Indication: SHORT-BOWEL SYNDROME
     Dosage: DF SUBUCTANEOUS
     Route: 058
     Dates: start: 201312, end: 2014
  5. SOLUTIONS FOR PARENTERAL NUTRION(UKNOWN UNTIL UKNOWN) [Concomitant]
  6. TRAZODONE [Concomitant]
     Active Substance: TRAZODONE HYDROCHLORIDE
  7. DEXILANT [Concomitant]
     Active Substance: DEXLANSOPRAZOLE

REACTIONS (7)
  - Gastrointestinal stoma complication [None]
  - Quality of life decreased [None]
  - Diarrhoea [None]
  - Excoriation [None]
  - Dehydration [None]
  - Burning sensation [None]
  - Muscle spasms [None]

NARRATIVE: CASE EVENT DATE: 2014
